FAERS Safety Report 8773657 (Version 3)
Quarter: 2013Q3

REPORT INFORMATION
  Report Type: Spontaneous
  Country: PH (occurrence: PH)
  Receive Date: 20120907
  Receipt Date: 20130927
  Transmission Date: 20140515
  Serious: Yes (Other)
  Sender: FDA-Public Use
  Company Number: PHHY2012PH077085

PATIENT
  Age: 59 Year
  Sex: Female

DRUGS (5)
  1. ZOLEDRONATE [Suspect]
     Dosage: UNK UKN, UNK, MONTHLY
     Route: 042
  2. ZOLEDRONATE [Suspect]
     Dosage: UNK UKN, UNK, MONTHLY
     Route: 042
  3. MELPHALAN [Concomitant]
     Route: 048
  4. DEXAMETHASONE [Concomitant]
  5. PREDNISONE [Concomitant]
     Route: 048

REACTIONS (7)
  - Metastases to bone [Unknown]
  - Osteonecrosis of jaw [Unknown]
  - High turnover osteopathy [Unknown]
  - Necrosis [Unknown]
  - Pain in jaw [Unknown]
  - Purulent discharge [Unknown]
  - Bone swelling [Unknown]
